FAERS Safety Report 10099269 (Version 1)
Quarter: 2014Q2

REPORT INFORMATION
  Report Type: Spontaneous
  Country: US (occurrence: US)
  Receive Date: 20140423
  Receipt Date: 20140423
  Transmission Date: 20141212
  Serious: No
  Sender: FDA-Public Use
  Company Number: US-PFIZER INC-2014109571

PATIENT
  Age: 53 Year
  Sex: Male
  Weight: 81.63 kg

DRUGS (1)
  1. FLAGYL [Suspect]
     Indication: ANTIBIOTIC THERAPY
     Dosage: 500 MG, 1X/DAY
     Route: 048
     Dates: start: 20140403, end: 20140410

REACTIONS (4)
  - Blood pressure increased [Recovered/Resolved]
  - Heart rate decreased [Recovered/Resolved]
  - Dizziness [Recovered/Resolved]
  - Vertigo [Recovered/Resolved]
